FAERS Safety Report 25862177 (Version 1)
Quarter: 2025Q3

REPORT INFORMATION
  Report Type: Spontaneous
  Country: EU (occurrence: EU)
  Receive Date: 20250930
  Receipt Date: 20250930
  Transmission Date: 20251020
  Serious: Yes (Hospitalization, Other)
  Sender: AUROBINDO
  Company Number: EU-ABBVIE-6400431

PATIENT
  Age: 75 Year
  Sex: Male

DRUGS (10)
  1. RAMIPRIL [Suspect]
     Active Substance: RAMIPRIL
     Indication: Product used for unknown indication
     Route: 065
  2. FOSCARBIDOPA\FOSLEVODOPA [Suspect]
     Active Substance: FOSCARBIDOPA\FOSLEVODOPA
     Indication: Parkinson^s disease
     Route: 058
     Dates: start: 20240409
  3. FOSCARBIDOPA\FOSLEVODOPA [Suspect]
     Active Substance: FOSCARBIDOPA\FOSLEVODOPA
     Route: 058
  4. AMPHOTERICIN B [Concomitant]
     Active Substance: AMPHOTERICIN B
     Indication: Product used for unknown indication
     Dosage: 10 MILLIGRAM, 3 TIMES A DAY
     Route: 048
  5. CHOLECALCIFEROL [Concomitant]
     Active Substance: CHOLECALCIFEROL
     Indication: Product used for unknown indication
     Dosage: 1000 INTERNATIONAL UNIT, ONCE A DAY (1000 IU, 1 IN MORNING)
     Route: 048
  6. AMLODIPINE [Concomitant]
     Active Substance: AMLODIPINE BESYLATE
     Indication: Product used for unknown indication
     Route: 048
  7. LEVOTHYROXINE [Concomitant]
     Active Substance: LEVOTHYROXINE
     Indication: Product used for unknown indication
     Dosage: UNK UNK, ONCE A DAY (125,1IN MORNING)
     Route: 048
  8. OPICAPONE [Concomitant]
     Active Substance: OPICAPONE
     Indication: Product used for unknown indication
     Dosage: 50 MILLIGRAM, ONCE A DAY (1 IN EVENING)
     Route: 065
  9. MIRTAZAPINE [Concomitant]
     Active Substance: MIRTAZAPINE
     Indication: Product used for unknown indication
     Route: 065
  10. VITAMIN D3 [Concomitant]
     Active Substance: CHOLECALCIFEROL
     Indication: Product used for unknown indication
     Route: 065

REACTIONS (37)
  - Pneumonia [Unknown]
  - Parkinson^s disease [Unknown]
  - Coma [Recovering/Resolving]
  - Hospitalisation [Not Recovered/Not Resolved]
  - Hypothyroidism [Unknown]
  - Pelvic abscess [Unknown]
  - Hypotension [Not Recovered/Not Resolved]
  - Gait disturbance [Unknown]
  - Movement disorder [Unknown]
  - Dysphagia [Unknown]
  - Asthenia [Recovered/Resolved]
  - Fall [Unknown]
  - Malaise [Unknown]
  - Blood pressure decreased [Unknown]
  - Visual impairment [Unknown]
  - Hyperkinesia [Unknown]
  - Catheter site inflammation [Unknown]
  - Catheter site induration [Unknown]
  - Somnolence [Unknown]
  - Dyskinesia [Recovering/Resolving]
  - Night sweats [Unknown]
  - Cough [Unknown]
  - Cognitive disorder [Unknown]
  - Infusion site abscess [Unknown]
  - Hypertension [Unknown]
  - Injection site injury [Unknown]
  - Bronchitis [Unknown]
  - Flatulence [Unknown]
  - Foreign body in gastrointestinal tract [Unknown]
  - Dyspnoea [Recovered/Resolved]
  - Anxiety [Unknown]
  - Restlessness [Unknown]
  - Pain [Unknown]
  - Limb discomfort [Unknown]
  - Musculoskeletal stiffness [Recovering/Resolving]
  - Grip strength decreased [Unknown]
  - Drug intolerance [Unknown]

NARRATIVE: CASE EVENT DATE: 20241104
